FAERS Safety Report 23874983 (Version 1)
Quarter: 2024Q2

REPORT INFORMATION
  Report Type: Spontaneous
  Country: FR (occurrence: FR)
  Receive Date: 20240520
  Receipt Date: 20240520
  Transmission Date: 20240715
  Serious: Yes (Other)
  Sender: FDA-Public Use
  Company Number: FR-ORGANON-O2405FRA001461

PATIENT
  Age: 18 Year
  Sex: Female

DRUGS (1)
  1. NEXPLANON [Suspect]
     Active Substance: ETONOGESTREL
     Dosage: 1 IMPLANT
     Route: 059
     Dates: start: 2023

REACTIONS (3)
  - General anaesthesia [Unknown]
  - Complication associated with device [Not Recovered/Not Resolved]
  - Complication of device removal [Not Recovered/Not Resolved]

NARRATIVE: CASE EVENT DATE: 20240411
